FAERS Safety Report 9171041 (Version 1)
Quarter: 2013Q1

REPORT INFORMATION
  Report Type: Spontaneous
  Country: US (occurrence: None)
  Receive Date: 20130315
  Receipt Date: 20130315
  Transmission Date: 20140127
  Serious: Yes (Death)
  Sender: FDA-Public Use
  Company Number: 1303-307

PATIENT
  Sex: Female

DRUGS (1)
  1. EYLEA [Suspect]

REACTIONS (1)
  - Death [None]
